FAERS Safety Report 9133558 (Version 1)
Quarter: 2013Q1

REPORT INFORMATION
  Report Type: Spontaneous
  Country: US (occurrence: US)
  Receive Date: 20130124
  Receipt Date: 20130124
  Transmission Date: 20140127
  Serious: Yes (Life-Threatening)
  Sender: FDA-Public Use
  Company Number: US-BRACCO-007864

PATIENT
  Age: 57 Year
  Sex: Female
  Weight: 154 kg

DRUGS (6)
  1. HUMALOG [Concomitant]
  2. BETA BLOCKING AGENTS [Concomitant]
  3. ACE INHIBITORS [Concomitant]
  4. MULTIHANCE [Suspect]
     Indication: BLINDNESS
     Route: 042
     Dates: start: 20120416, end: 20120416
  5. MULTIHANCE [Suspect]
     Indication: NUCLEAR MAGNETIC RESONANCE IMAGING BRAIN
     Route: 042
     Dates: start: 20120416, end: 20120416
  6. MULTIHANCE [Suspect]
     Indication: TRANSIENT ISCHAEMIC ATTACK
     Route: 042
     Dates: start: 20120416, end: 20120416

REACTIONS (1)
  - Anaphylactic reaction [Recovered/Resolved]
